FAERS Safety Report 8804559 (Version 2)
Quarter: 2015Q1

REPORT INFORMATION
  Report Type: Report from Study
  Country: US (occurrence: US)
  Receive Date: 20120924
  Receipt Date: 20150227
  Transmission Date: 20150721
  Serious: Yes (Death)
  Sender: FDA-Public Use
  Company Number: US-ROCHE-1098226

PATIENT
  Age: 59 Year
  Sex: Female

DRUGS (21)
  1. AVASTIN [Suspect]
     Active Substance: BEVACIZUMAB
     Indication: ADRENAL GLAND CANCER
  2. ERLOTINIB [Suspect]
     Active Substance: ERLOTINIB
     Indication: PRODUCT USED FOR UNKNOWN INDICATION
     Route: 048
  3. GEMZAR [Concomitant]
     Active Substance: GEMCITABINE HYDROCHLORIDE
     Route: 065
  4. ABRAXANE [Concomitant]
     Active Substance: PACLITAXEL
  5. DEXAMETHASONE. [Concomitant]
     Active Substance: DEXAMETHASONE
     Route: 042
  6. DURAGESIC [Concomitant]
     Active Substance: FENTANYL
     Route: 065
  7. AVASTIN [Suspect]
     Active Substance: BEVACIZUMAB
     Indication: LUNG NEOPLASM MALIGNANT
     Route: 042
     Dates: start: 20081230
  8. PEPCID [Concomitant]
     Active Substance: FAMOTIDINE
     Route: 042
  9. BENADRYL [Concomitant]
     Active Substance: DIPHENHYDRAMINE HYDROCHLORIDE
     Route: 042
  10. FOLATE [Concomitant]
     Active Substance: FOLATE SODIUM
     Route: 065
  11. AVASTIN [Suspect]
     Active Substance: BEVACIZUMAB
     Indication: METASTASES TO LIVER
     Route: 042
     Dates: start: 20090120
  12. AVASTIN [Suspect]
     Active Substance: BEVACIZUMAB
     Indication: ADRENAL GLAND CANCER
     Route: 042
     Dates: start: 20090210
  13. ETOPOSIDE. [Concomitant]
     Active Substance: ETOPOSIDE
  14. VITAMIN B12 [Concomitant]
     Active Substance: CYANOCOBALAMIN
  15. PEGFILGRASTIM [Concomitant]
     Active Substance: PEGFILGRASTIM
     Route: 065
  16. CARBOPLATIN. [Concomitant]
     Active Substance: CARBOPLATIN
  17. AVASTIN [Suspect]
     Active Substance: BEVACIZUMAB
     Indication: ADRENAL GLAND CANCER
  18. ALIMTA [Concomitant]
     Active Substance: PEMETREXED DISODIUM
     Route: 042
  19. AVASTIN [Suspect]
     Active Substance: BEVACIZUMAB
     Indication: ADRENAL GLAND CANCER
  20. TAXOL [Concomitant]
     Active Substance: PACLITAXEL
  21. ALOXI [Concomitant]
     Active Substance: PALONOSETRON HYDROCHLORIDE
     Route: 042

REACTIONS (2)
  - Death [Fatal]
  - Back pain [Unknown]

NARRATIVE: CASE EVENT DATE: 20090411
